FAERS Safety Report 20094680 (Version 1)
Quarter: 2021Q4

REPORT INFORMATION
  Report Type: Spontaneous
  Country: US (occurrence: None)
  Receive Date: 20211122
  Receipt Date: 20211122
  Transmission Date: 20220303
  Serious: No
  Sender: FDA-Public Use
  Company Number: 2021A803668

PATIENT
  Age: 1055 Month
  Sex: Female
  Weight: 55.8 kg

DRUGS (2)
  1. SYMBICORT [Suspect]
     Active Substance: BUDESONIDE\FORMOTEROL FUMARATE DIHYDRATE
     Indication: Nodule
     Dosage: 80MCG/4.5MCG, 2 PUFFS TWICE DAILY
     Route: 055
     Dates: start: 202110
  2. SYMBICORT [Suspect]
     Active Substance: BUDESONIDE\FORMOTEROL FUMARATE DIHYDRATE
     Indication: Asthma
     Dosage: 80MCG/4.5MCG, 2 PUFFS TWICE DAILY
     Route: 055
     Dates: start: 202110

REACTIONS (3)
  - Ageusia [Unknown]
  - Drug ineffective [Unknown]
  - Device malfunction [Unknown]

NARRATIVE: CASE EVENT DATE: 20211001
